FAERS Safety Report 5327199-7 (Version None)
Quarter: 2007Q2

REPORT INFORMATION
  Report Type: 
  Country: None (occurrence: None)
  Receive Date: 20070517
  Receipt Date: 20070508
  Transmission Date: 20071010
  Serious: Yes (Hospitalization)
  Sender: FDA-Public Use
  Company Number: US-AMGEN-US223732

PATIENT
  Sex: Female

DRUGS (1)
  1. ARANESP [Suspect]
     Indication: DRUG USE FOR UNKNOWN INDICATION
     Dates: end: 20070101

REACTIONS (5)
  - HAEMOGLOBIN DECREASED [None]
  - HIP ARTHROPLASTY [None]
  - HYSTERECTOMY [None]
  - KNEE ARTHROPLASTY [None]
  - NASOPHARYNGITIS [None]
